FAERS Safety Report 4711115-2 (Version None)
Quarter: 2005Q3

REPORT INFORMATION
  Report Type: 
  Country: None (occurrence: None)
  Receive Date: 20050708
  Receipt Date: 20050624
  Transmission Date: 20060218
  Serious: Yes (Hospitalization)
  Sender: FDA-Public Use
  Company Number: 2005-0008457

PATIENT
  Age: 36 Year
  Sex: Male

DRUGS (4)
  1. VIREAD [Suspect]
     Dosage: 300 MG, 1 IN 1 D, ORAL
     Route: 048
     Dates: start: 20040906, end: 20041026
  2. NORVIR [Suspect]
     Dosage: 1 DOSAGE FORMS, 2 IN 1 D, ORAL
     Route: 048
     Dates: start: 20040906, end: 20041026
  3. EPIVIR [Suspect]
     Dosage: 1 DOSAGE FORMS, 1 IN 1 D, ORAL
     Route: 048
     Dates: start: 20040906, end: 20041026
  4. TELZIR (FOSAMPRENAVIR) [Suspect]
     Dosage: 1 DOSAGE FORMS, 2 IN 1 D, ORAL
     Route: 048
     Dates: start: 20040906, end: 20041026

REACTIONS (2)
  - BLOOD CREATINE PHOSPHOKINASE INCREASED [None]
  - HEPATITIS VIRAL [None]
